FAERS Safety Report 5280032-4 (Version None)
Quarter: 2007Q1

REPORT INFORMATION
  Report Type: 
  Country: None (occurrence: None)
  Receive Date: 20070329
  Receipt Date: 20070326
  Transmission Date: 20070707
  Serious: Yes (Death, Life-Threatening)
  Sender: FDA-Public Use
  Company Number: JP-BAYER-200710190BYL

PATIENT
  Age: 89 Year
  Sex: Female

DRUGS (7)
  1. CIPROFLOXACIN [Suspect]
     Indication: ESCHERICHIA SEPSIS
     Route: 048
     Dates: start: 20050707, end: 20050713
  2. CIPROFLOXACIN [Suspect]
     Dosage: TOTAL DAILY DOSE: 400 MG  UNIT DOSE: 200 MG
     Route: 048
     Dates: start: 20050723, end: 20050729
  3. TIENAM [Suspect]
     Route: 041
     Dates: start: 20050706, end: 20050722
  4. METHOTREXATE [Concomitant]
  5. BAKTAR [Concomitant]
     Route: 048
     Dates: start: 20050707, end: 20050713
  6. PRODIF [Concomitant]
     Route: 041
     Dates: start: 20050708, end: 20050713
  7. VANCOMYCIN HYDROCHLORIDE [Concomitant]
     Route: 065
     Dates: start: 20050708, end: 20050712

REACTIONS (1)
  - PSEUDOMEMBRANOUS COLITIS [None]
